FAERS Safety Report 19088878 (Version 1)
Quarter: 2021Q2

REPORT INFORMATION
  Report Type: Spontaneous
  Country: CN (occurrence: CN)
  Receive Date: 20210403
  Receipt Date: 20210403
  Transmission Date: 20210717
  Serious: Yes (Other)
  Sender: FDA-Public Use
  Company Number: CN-ROCHE-2800544

PATIENT
  Age: 77 Year
  Sex: Female
  Weight: 36.6 kg

DRUGS (2)
  1. SODIUM CHLORIDE IV [Concomitant]
     Active Substance: SODIUM CHLORIDE
     Indication: BONE NEOPLASM
     Dosage: 0.9%
     Route: 041
     Dates: start: 20210323, end: 20210323
  2. RITUXIMAB. [Suspect]
     Active Substance: RITUXIMAB
     Indication: BONE NEOPLASM
     Route: 041
     Dates: start: 20210323, end: 20210323

REACTIONS (7)
  - Blood pressure increased [Recovering/Resolving]
  - Temperature intolerance [Recovering/Resolving]
  - Heart rate increased [Recovering/Resolving]
  - Pyrexia [Recovering/Resolving]
  - Chills [Recovering/Resolving]
  - Off label use [Unknown]
  - Tachypnoea [Recovering/Resolving]

NARRATIVE: CASE EVENT DATE: 20210323
